FAERS Safety Report 7584148-9 (Version None)
Quarter: 2011Q2

REPORT INFORMATION
  Report Type: 
  Country: None (occurrence: None)
  Receive Date: 20110630
  Receipt Date: 20110628
  Transmission Date: 20111010
  Serious: Yes (Hospitalization, Other)
  Sender: FDA-Public Use
  Company Number: JP-PFIZER INC-2011132671

PATIENT
  Age: 80 Year
  Sex: Male

DRUGS (3)
  1. GABAPENTIN [Suspect]
     Indication: POST HERPETIC NEURALGIA
     Dosage: 600MG DAILY
     Route: 048
     Dates: start: 20110525, end: 20110601
  2. MORPHINE [Concomitant]
     Dosage: 30MG DAILY
  3. GABAPENTIN [Suspect]
     Dosage: 1200 MG/DAY
     Route: 048
     Dates: start: 20110602, end: 20110601

REACTIONS (5)
  - RENAL FAILURE ACUTE [None]
  - HYPERSENSITIVITY [None]
  - DRUG ERUPTION [None]
  - PYREXIA [None]
  - DERMATITIS EXFOLIATIVE [None]
